FAERS Safety Report 5841956-X (Version None)
Quarter: 2008Q3

REPORT INFORMATION
  Report Type: 
  Country: None (occurrence: None)
  Receive Date: 20080812
  Receipt Date: 20060217
  Transmission Date: 20090109
  Serious: Yes (Hospitalization)
  Sender: FDA-Public Use
  Company Number: US-MERCK-0506USA03789B1

PATIENT
  Age: 0 Day
  Sex: Female
  Weight: 2 kg

DRUGS (2)
  1. SINGULAIR [Suspect]
     Indication: SINUSITIS
     Route: 064
     Dates: start: 20040101
  2. SYNTHROID [Concomitant]
     Indication: HYPOTHYROIDISM
     Route: 064

REACTIONS (2)
  - JAUNDICE [None]
  - PREMATURE BABY [None]
